FAERS Safety Report 12252749 (Version 1)
Quarter: 2016Q2

REPORT INFORMATION
  Report Type: Spontaneous
  Country: US (occurrence: None)
  Receive Date: 20160408
  Receipt Date: 20160408
  Transmission Date: 20160815
  Serious: Yes (Other)
  Sender: FDA-Public Use
  Company Number: None

PATIENT
  Age: 47 Year
  Sex: Female
  Weight: 54.89 kg

DRUGS (12)
  1. FLUDROCORT [Concomitant]
  2. NEXIUM [Concomitant]
     Active Substance: ESOMEPRAZOLE MAGNESIUM
  3. VIT B2 [Concomitant]
  4. CALCIUM [Concomitant]
     Active Substance: CALCIUM
  5. ZENPEP [Suspect]
     Active Substance: PANCRELIPASE AMYLASE\PANCRELIPASE LIPASE\PANCRELIPASE PROTEASE
     Indication: AUTOIMMUNE THYROIDITIS
     Dosage: 150 CAPSULE(S) 5 TIMES A DAY TAKEN BY MOUTH
     Route: 048
     Dates: start: 20160405, end: 20160406
  6. CAMRESE LO [Concomitant]
  7. MULTIVITAMIN [Concomitant]
     Active Substance: VITAMINS
  8. PAMINE FORTE [Concomitant]
     Active Substance: METHSCOPOLAMINE BROMIDE
  9. GLUCOSAMINE [Concomitant]
     Active Substance: GLUCOSAMINE
  10. FISH OIL [Concomitant]
     Active Substance: FISH OIL
  11. SINGULAIR [Concomitant]
     Active Substance: MONTELUKAST SODIUM
  12. WELCHOL [Concomitant]
     Active Substance: COLESEVELAM HYDROCHLORIDE

REACTIONS (2)
  - Abdominal pain [None]
  - Nausea [None]

NARRATIVE: CASE EVENT DATE: 20160405
